FAERS Safety Report 23366654 (Version 5)
Quarter: 2024Q3

REPORT INFORMATION
  Report Type: Report from Study
  Country: MX (occurrence: None)
  Receive Date: 20240104
  Receipt Date: 20240711
  Transmission Date: 20241017
  Serious: Yes (Death, Disabling, Other)
  Sender: ASTRAZENECA
  Company Number: 2023A295020

PATIENT
  Age: 3909 Week
  Sex: Male
  Weight: 60 kg

DRUGS (11)
  1. DAPAGLIFLOZIN [Suspect]
     Active Substance: DAPAGLIFLOZIN
     Indication: Cardiac failure
     Route: 048
     Dates: start: 20231001
  2. PREDNISONE [Concomitant]
     Active Substance: PREDNISONE
     Dosage: ONE IN THE MORNING AND ONE IN THE AFTERNOON
  3. MYCOPHENOLIC ACID [Concomitant]
     Active Substance: MYCOPHENOLIC ACID
     Dosage: ONE IN THE MORNING AND ONE IN THE AFTERNOON (DOES NOT PROVIDE GRAMMAGE)
  4. PREGABALIN [Concomitant]
     Active Substance: PREGABALIN
  5. SILDENAFIL [Concomitant]
     Active Substance: SILDENAFIL
     Dosage: 20 MG ONE IN THE MORNING AND ONE IN THE EVENING
  6. CALCITRIOL [Concomitant]
     Active Substance: CALCITRIOL
  7. PROPRANOLOL [Concomitant]
     Active Substance: PROPRANOLOL HYDROCHLORIDE
  8. ASPIRIN [Concomitant]
     Active Substance: ASPIRIN
     Dosage: 300 MG, TAKE HALF DISSOLVED IN WATER
  9. TAMSULOSIN HYDROCHLORIDE [Concomitant]
     Active Substance: TAMSULOSIN HYDROCHLORIDE
     Indication: Prostate cancer
  10. MACITENTAN [Concomitant]
     Active Substance: MACITENTAN
     Indication: Cardiac failure
  11. CALCIUM\CHOLECALCIFEROL [Concomitant]
     Active Substance: CALCIUM\CHOLECALCIFEROL
     Dosage: 20 MG ONE IN THE MORNING AND ONE IN THE EVENING

REACTIONS (17)
  - Death [Fatal]
  - Cataract [Not Recovered/Not Resolved]
  - Dyspnoea [Not Recovered/Not Resolved]
  - Suffocation feeling [Not Recovered/Not Resolved]
  - Fatigue [Not Recovered/Not Resolved]
  - Nervous system disorder [Not Recovered/Not Resolved]
  - Palpitations [Not Recovered/Not Resolved]
  - Pain [Not Recovered/Not Resolved]
  - Visual impairment [Not Recovered/Not Resolved]
  - Off label use [Unknown]
  - Product dose omission issue [Unknown]
  - Agitation [Not Recovered/Not Resolved]
  - Malaise [Not Recovered/Not Resolved]
  - General physical health deterioration [Recovering/Resolving]
  - Myalgia [Recovering/Resolving]
  - Oxygen saturation decreased [Not Recovered/Not Resolved]
  - Mobility decreased [Not Recovered/Not Resolved]

NARRATIVE: CASE EVENT DATE: 20231001
